FAERS Safety Report 9580233 (Version 2)
Quarter: 2013Q4

REPORT INFORMATION
  Report Type: Report from Study
  Country: NZ (occurrence: NZ)
  Receive Date: 20131002
  Receipt Date: 20131002
  Transmission Date: 20140711
  Serious: Yes (Hospitalization)
  Sender: FDA-Public Use
  Company Number: NZ-SANOFI-AVENTIS-2013SA060408

PATIENT
  Age: 72 Year
  Sex: Male

DRUGS (10)
  1. DOCETAXEL [Suspect]
     Indication: PROSTATE CANCER
     Route: 042
     Dates: start: 20130530, end: 20130711
  2. DOCETAXEL [Suspect]
     Indication: PROSTATE CANCER
     Route: 042
     Dates: start: 20130801, end: 20130822
  3. BICALUTAMIDE [Suspect]
     Indication: PROSTATE CANCER
     Dosage: DOSE 50 UNITS UNSPECIFIED
     Route: 048
     Dates: start: 20130512, end: 20130827
  4. ZOLADEX [Suspect]
     Indication: PROSTATE CANCER
     Dosage: DOSE 10.8 UNITS UNSPECIFIED EVERY 3 MONTHS X 2
     Route: 058
     Dates: start: 20130517, end: 20130801
  5. ASPIRIN [Concomitant]
  6. CILAZAPRIL [Concomitant]
  7. AMLODIPINE [Concomitant]
  8. METOPROLOL [Concomitant]
  9. AMITRIPTYLINE [Concomitant]
  10. SIMVASTATIN [Concomitant]

REACTIONS (4)
  - Depression [Not Recovered/Not Resolved]
  - Diarrhoea [Recovered/Resolved]
  - Dehydration [Not Recovered/Not Resolved]
  - Fatigue [Not Recovered/Not Resolved]
